FAERS Safety Report 25605619 (Version 1)
Quarter: 2025Q3

REPORT INFORMATION
  Report Type: Spontaneous
  Country: US (occurrence: US)
  Receive Date: 20250725
  Receipt Date: 20250725
  Transmission Date: 20251021
  Serious: No
  Sender: SANOFI AVENTIS
  Company Number: US-SA-2025SA213390

PATIENT
  Sex: Female
  Weight: 73.18 kg

DRUGS (17)
  1. DUPIXENT [Suspect]
     Active Substance: DUPILUMAB
     Indication: Asthma
     Dosage: 200 MG, QOW
     Route: 058
  2. PROBIOTICS NOS [Concomitant]
     Active Substance: PROBIOTICS NOS
  3. IRON [Concomitant]
     Active Substance: IRON
  4. KRILL OIL [Concomitant]
     Active Substance: DIETARY SUPPLEMENT\KRILL OIL
  5. VITAMIN D3 [Concomitant]
     Active Substance: CHOLECALCIFEROL
  6. ZINC [Concomitant]
     Active Substance: ZINC
  7. VITAMINS [Concomitant]
     Active Substance: VITAMINS
  8. CALCIUM [Concomitant]
     Active Substance: CALCIUM
  9. MINERALS\VITAMINS [Concomitant]
     Active Substance: MINERALS\VITAMINS
  10. SPIRONOLACTONE [Concomitant]
     Active Substance: SPIRONOLACTONE
  11. ATENOLOL [Concomitant]
     Active Substance: ATENOLOL
  12. ESCITALOPRAM OXALATE [Concomitant]
     Active Substance: ESCITALOPRAM OXALATE
  13. PRAVASTATIN SODIUM [Concomitant]
     Active Substance: PRAVASTATIN SODIUM
  14. MONTELUKAST SODIUM [Concomitant]
     Active Substance: MONTELUKAST SODIUM
  15. FAMOTIDINE [Concomitant]
     Active Substance: FAMOTIDINE
  16. DEXLANSOPRAZOLE DELAYED RELEASE [Concomitant]
     Active Substance: DEXLANSOPRAZOLE
  17. LEVOTHYROXINE SODIUM [Concomitant]
     Active Substance: LEVOTHYROXINE SODIUM

REACTIONS (2)
  - Accidental exposure to product [Unknown]
  - Exposure via skin contact [Unknown]
